FAERS Safety Report 7988324-2 (Version None)
Quarter: 2011Q4

REPORT INFORMATION
  Report Type: 
  Country: None (occurrence: None)
  Receive Date: 20111216
  Receipt Date: 20111201
  Transmission Date: 20120403
  Serious: Yes (Hospitalization)
  Sender: FDA-Public Use
  Company Number: US-WATSON-2011-21510

PATIENT
  Age: 51 Year
  Sex: Female

DRUGS (3)
  1. METOPROLOL TARTRATE [Suspect]
     Indication: PRODUCT USED FOR UNKNOWN INDICATION
     Dosage: EMPTY BOTTLE OF METOPROLOL AT BEDSIDE
     Route: 065
  2. VENLAFAXINE HYDROCHLORIDE [Suspect]
     Indication: PRODUCT USED FOR UNKNOWN INDICATION
     Dosage: EMPTY BOTTLE OF VENLAFAXINE AT BEDSIDE
     Route: 065
  3. TYLENOL (CAPLET) [Suspect]
     Indication: PRODUCT USED FOR UNKNOWN INDICATION
     Dosage: EMPTY BOTTLE OF TYLENOL AT BEDSIDE
     Route: 065

REACTIONS (3)
  - UNRESPONSIVE TO STIMULI [None]
  - ACUTE MYOCARDIAL INFARCTION [None]
  - OVERDOSE [None]
